FAERS Safety Report 23646578 (Version 1)
Quarter: 2024Q1

REPORT INFORMATION
  Report Type: Spontaneous
  Country: DE (occurrence: DE)
  Receive Date: 20240319
  Receipt Date: 20240319
  Transmission Date: 20240410
  Serious: Yes (Other)
  Sender: FDA-Public Use
  Company Number: DE-AMGEN-DEUSP2024052807

PATIENT
  Age: 22 Year

DRUGS (2)
  1. BEVACIZUMAB [Suspect]
     Active Substance: BEVACIZUMAB
     Indication: Corneal disorder
     Dosage: 2 MILLIGRAM (SUBCONJUNCTIVAL)
     Route: 065
  2. BEVACIZUMAB [Suspect]
     Active Substance: BEVACIZUMAB
     Indication: Limbal stem cell deficiency

REACTIONS (6)
  - Post procedural complication [Unknown]
  - Persistent corneal epithelial defect [Unknown]
  - Ulcerative keratitis [Unknown]
  - Corneal disorder [Unknown]
  - Suture related complication [Unknown]
  - Off label use [Unknown]
